FAERS Safety Report 4956912-3 (Version None)
Quarter: 2006Q1

REPORT INFORMATION
  Report Type: 
  Country: None (occurrence: None)
  Receive Date: 20060329
  Receipt Date: 20060302
  Transmission Date: 20060701
  Serious: Yes (Other)
  Sender: FDA-Public Use
  Company Number: JP-NOVOPROD-251292

PATIENT
  Age: 7 Year
  Sex: Male
  Weight: 23 kg

DRUGS (1)
  1. NORDITROPIN SIMPLEXX [Suspect]
     Indication: BODY HEIGHT BELOW NORMAL
     Dosage: 4.2 - 8.6 MG WEEKLY
     Route: 058
     Dates: start: 20010209, end: 20051025

REACTIONS (1)
  - BRAIN SCAN ABNORMAL [None]
